FAERS Safety Report 9691670 (Version 2)
Quarter: 2013Q4

REPORT INFORMATION
  Report Type: Spontaneous
  Country: US (occurrence: US)
  Receive Date: 20131115
  Receipt Date: 20131125
  Transmission Date: 20140711
  Serious: Yes (Hospitalization)
  Sender: FDA-Public Use
  Company Number: US-BAXTER-2013BAX044708

PATIENT
  Sex: Male

DRUGS (3)
  1. DIANEAL LOW CALCIUM [Suspect]
     Indication: RENAL FAILURE CHRONIC
     Route: 033
  2. WARFARIN [Suspect]
     Indication: DEEP VEIN THROMBOSIS
  3. WARFARIN [Concomitant]
     Indication: DEEP VEIN THROMBOSIS

REACTIONS (3)
  - Deep vein thrombosis [Recovered/Resolved]
  - Pulmonary embolism [Recovered/Resolved]
  - Anticoagulation drug level below therapeutic [Recovered/Resolved]
